FAERS Safety Report 15410751 (Version 1)
Quarter: 2018Q3

REPORT INFORMATION
  Report Type: Report from Study
  Country: None (occurrence: AR)
  Receive Date: 20180921
  Receipt Date: 20180921
  Transmission Date: 20181010
  Serious: Yes (Other)
  Sender: FDA-Public Use
  Company Number: AR-ABBVIE-18K-007-2491846-00

PATIENT
  Age: 68 Year
  Sex: Male

DRUGS (1)
  1. HUMIRA [Suspect]
     Active Substance: ADALIMUMAB
     Indication: CROHN^S DISEASE
     Route: 058
     Dates: start: 20170921

REACTIONS (4)
  - Glucose tolerance impaired [Recovered/Resolved]
  - Lactose intolerance [Recovered/Resolved]
  - Haemorrhage [Recovered/Resolved]
  - Food intolerance [Recovered/Resolved]

NARRATIVE: CASE EVENT DATE: 20180817
